FAERS Safety Report 4588956-8 (Version None)
Quarter: 2005Q1

REPORT INFORMATION
  Report Type: 
  Country: None (occurrence: None)
  Receive Date: 20050216
  Receipt Date: 20050128
  Transmission Date: 20050727
  Serious: Yes (Other)
  Sender: FDA-Public Use
  Company Number: USA050189354

PATIENT
  Sex: Male

DRUGS (1)
  1. STRATTERA [Suspect]
     Dates: start: 20040501

REACTIONS (2)
  - CARDIOMEGALY [None]
  - HYPERTENSION [None]
